FAERS Safety Report 21589838 (Version 1)
Quarter: 2022Q4

REPORT INFORMATION
  Report Type: Report from Study
  Country: US (occurrence: US)
  Receive Date: 20221114
  Receipt Date: 20221114
  Transmission Date: 20230113
  Serious: Yes (Other)
  Sender: FDA-Public Use
  Company Number: US-ABBVIE-4196117

PATIENT
  Sex: Female
  Weight: 72 kg

DRUGS (1)
  1. CREON [Suspect]
     Active Substance: PANCRELIPASE AMYLASE\PANCRELIPASE LIPASE\PANCRELIPASE PROTEASE
     Indication: Pancreatic disorder
     Dosage: 1 CAPULE PER MEAL AND SNACK?FORM STRENGTH 36000 UNIT
     Route: 048

REACTIONS (1)
  - Heart rate decreased [Recovering/Resolving]
